FAERS Safety Report 16457594 (Version 1)
Quarter: 2019Q2

REPORT INFORMATION
  Report Type: Spontaneous
  Country: US (occurrence: US)
  Receive Date: 20190620
  Receipt Date: 20190620
  Transmission Date: 20190711
  Serious: No
  Sender: FDA-Public Use
  Company Number: US-009507513-1905USA012153

PATIENT
  Sex: Female

DRUGS (1)
  1. NUVARING [Suspect]
     Active Substance: ETHINYL ESTRADIOL\ETONOGESTREL
     Dosage: STRENGTH: 0.0125/0.12 (UNIT UNSPECIFIED); USUSALLY KEPT IN FOR 4 WEEKS
     Route: 067

REACTIONS (4)
  - Menstruation delayed [Not Recovered/Not Resolved]
  - Incorrect product administration duration [Unknown]
  - Intentional product misuse [Unknown]
  - Intentional medical device removal by patient [Unknown]

NARRATIVE: CASE EVENT DATE: 20190522
